FAERS Safety Report 24769697 (Version 1)
Quarter: 2024Q4

REPORT INFORMATION
  Report Type: Spontaneous
  Country: US (occurrence: US)
  Receive Date: 20241224
  Receipt Date: 20241224
  Transmission Date: 20250115
  Serious: Yes (Other)
  Sender: AUROBINDO
  Company Number: US-AUROBINDO-AUR-APL-2024-062542

PATIENT
  Sex: Female

DRUGS (10)
  1. CYCLOPHOSPHAMIDE [Suspect]
     Active Substance: CYCLOPHOSPHAMIDE
     Indication: Spindle cell sarcoma
     Dosage: UNK
     Route: 065
  2. MITOMYCIN [Suspect]
     Active Substance: MITOMYCIN
     Indication: Spindle cell sarcoma
     Dosage: UNK
     Route: 065
  3. DOXORUBICIN [Suspect]
     Active Substance: DOXORUBICIN
     Indication: Spindle cell sarcoma
     Dosage: TWO CYCLES
     Route: 065
  4. IFOSFAMIDE [Suspect]
     Active Substance: IFOSFAMIDE
     Indication: Spindle cell sarcoma
     Dosage: TWO CYCLES
     Route: 065
  5. CISPLATIN [Suspect]
     Active Substance: CISPLATIN
     Indication: Spindle cell sarcoma
     Dosage: UNK
     Route: 065
  6. GEMCITABINE [Suspect]
     Active Substance: GEMCITABINE
     Indication: Spindle cell sarcoma
     Dosage: UNK
     Route: 065
  7. EPIRUBICIN [Suspect]
     Active Substance: EPIRUBICIN
     Indication: Spindle cell sarcoma
     Dosage: UNK
     Route: 065
  8. ETOPOSIDE [Suspect]
     Active Substance: ETOPOSIDE
     Indication: Spindle cell sarcoma
     Dosage: UNK
     Route: 065
  9. DIETARY SUPPLEMENT\RESVERATROL [Suspect]
     Active Substance: DIETARY SUPPLEMENT\RESVERATROL
     Indication: Spindle cell sarcoma
     Dosage: UNK
     Route: 065
  10. TOPOTECAN [Suspect]
     Active Substance: TOPOTECAN HYDROCHLORIDE
     Indication: Spindle cell sarcoma
     Dosage: UNK
     Route: 065

REACTIONS (1)
  - Drug ineffective [Unknown]
